FAERS Safety Report 10677815 (Version 1)
Quarter: 2014Q4

REPORT INFORMATION
  Report Type: Spontaneous
  Country: US (occurrence: None)
  Receive Date: 20141223
  Receipt Date: 20141223
  Transmission Date: 20150529
  Serious: Yes (Other)
  Sender: FDA-Public Use
  Company Number: 201412128

PATIENT
  Age: 31 Year
  Sex: Male

DRUGS (2)
  1. TESTIM [Suspect]
     Active Substance: TESTOSTERONE
     Indication: BLOOD TESTOSTERONE DECREASED
     Route: 062
     Dates: start: 201201, end: 201312
  2. DEPO-TESTOSTERONE [Suspect]
     Active Substance: TESTOSTERONE CYPIONATE
     Indication: BLOOD TESTOSTERONE DECREASED
     Dates: start: 201201, end: 201312

REACTIONS (5)
  - Myocardial infarction [None]
  - Unevaluable event [None]
  - Economic problem [None]
  - Coronary artery thrombosis [None]
  - Injury [None]

NARRATIVE: CASE EVENT DATE: 20130128
